FAERS Safety Report 6199054-4 (Version None)
Quarter: 2009Q2

REPORT INFORMATION
  Report Type: 
  Country: None (occurrence: None)
  Receive Date: 20090522
  Receipt Date: 20090518
  Transmission Date: 20091009
  Serious: Yes (Hospitalization)
  Sender: FDA-Public Use
  Company Number: CA-ROXANE LABORATORIES, INC.-2009-RO-00505RO

PATIENT
  Age: 45 Year
  Sex: Female

DRUGS (11)
  1. CYCLOPHOSPHAMIDE [Suspect]
     Indication: BREAST CANCER
  2. DOXORUBICIN HCL [Suspect]
     Indication: BREAST CANCER
  3. DOCETAXEL [Suspect]
     Indication: BREAST CANCER
  4. DOCETAXEL [Suspect]
  5. ANTIBIOTHERAPY [Suspect]
     Indication: PROPHYLAXIS
  6. CEFTAZIDIME [Suspect]
     Indication: LEUKOPENIA
     Route: 042
  7. CEFTAZIDIME [Suspect]
     Indication: NEUTROPENIA
  8. NEUPOGEN [Suspect]
     Indication: LEUKOPENIA
     Route: 058
  9. NEUPOGEN [Suspect]
     Indication: NEUTROPENIA
  10. CIPROFLOXACIN [Suspect]
  11. METRONIDAZOLE [Suspect]

REACTIONS (6)
  - DISSEMINATED INTRAVASCULAR COAGULATION [None]
  - HYPOTENSION [None]
  - LEUKOPENIA [None]
  - NEUTROPENIC COLITIS [None]
  - SEPTIC SHOCK [None]
  - TACHYCARDIA [None]
